FAERS Safety Report 7392361-9 (Version None)
Quarter: 2011Q2

REPORT INFORMATION
  Report Type: 
  Country: None (occurrence: None)
  Receive Date: 20110404
  Receipt Date: 20110330
  Transmission Date: 20111010
  Serious: Yes (Other)
  Sender: FDA-Public Use
  Company Number: US-PFIZER INC-2010046284

PATIENT
  Sex: Male
  Weight: 63.502 kg

DRUGS (6)
  1. EFFEXOR XR [Suspect]
     Indication: PANIC ATTACK
     Dosage: 75 MG, 2X/DAY
     Dates: start: 20100301
  2. EFFEXOR XR [Suspect]
     Indication: ANXIETY
  3. ZOLOFT [Suspect]
     Indication: PANIC ATTACK
     Dosage: 50 MG, UNK
     Dates: start: 20100101, end: 20100201
  4. ZOLOFT [Suspect]
     Indication: ANXIETY
  5. XANAX [Concomitant]
     Indication: SLEEP DISORDER
     Dosage: UNK
  6. ATIVAN [Concomitant]
     Dosage: AS NEEDED

REACTIONS (3)
  - PANIC DISORDER [None]
  - DRUG INEFFECTIVE [None]
  - ANXIETY [None]
